FAERS Safety Report 8136844-2 (Version None)
Quarter: 2012Q1

REPORT INFORMATION
  Report Type: 
  Country: None (occurrence: None)
  Receive Date: 20120214
  Receipt Date: 20120209
  Transmission Date: 20120608
  Serious: Yes (Hospitalization)
  Sender: FDA-Public Use
  Company Number: CA-ABBOTT-12P-028-0903153-00

PATIENT
  Age: 26 Year
  Sex: Female

DRUGS (2)
  1. BIAXIN [Suspect]
     Indication: NASOPHARYNGITIS
     Dates: start: 20111211
  2. BIAXIN [Suspect]
     Indication: LOWER RESPIRATORY TRACT INFECTION

REACTIONS (5)
  - CONFUSIONAL STATE [None]
  - DELUSION [None]
  - PARANOIA [None]
  - NIGHTMARE [None]
  - INSOMNIA [None]
